FAERS Safety Report 26066663 (Version 2)
Quarter: 2025Q4

REPORT INFORMATION
  Report Type: Spontaneous
  Country: US (occurrence: US)
  Receive Date: 20251119
  Receipt Date: 20251121
  Transmission Date: 20260118
  Serious: Yes (Other)
  Sender: NOVO NORDISK
  Company Number: US-NOVOPROD-1521587

PATIENT
  Age: 70 Year
  Sex: Male

DRUGS (3)
  1. TRESIBA [Interacting]
     Active Substance: INSULIN DEGLUDEC
     Indication: Type 2 diabetes mellitus
     Dosage: 65 IU, BID
     Route: 058
     Dates: start: 2015, end: 20250905
  2. TRESIBA [Interacting]
     Active Substance: INSULIN DEGLUDEC
     Dosage: UNK
     Dates: start: 20250906
  3. NOVOLOG [Suspect]
     Active Substance: INSULIN ASPART
     Indication: Type 2 diabetes mellitus
     Dosage: UNK (SLIDING SCALE, 3-5 TIMES A DAY)
     Route: 058
     Dates: start: 2000

REACTIONS (5)
  - Blood glucose decreased [Recovered/Resolved]
  - Blood glucose decreased [Unknown]
  - Drug effect faster than expected [Recovered/Resolved]
  - Product storage error [Unknown]
  - Product quality issue [Recovered/Resolved]

NARRATIVE: CASE EVENT DATE: 20250101
